FAERS Safety Report 9419462 (Version 1)
Quarter: 2013Q3

REPORT INFORMATION
  Report Type: Report from Study
  Country: TR (occurrence: TR)
  Receive Date: 20130725
  Receipt Date: 20130725
  Transmission Date: 20140515
  Serious: Yes (Disabling)
  Sender: FDA-Public Use
  Company Number: TR-BAYER-2013-088114

PATIENT
  Age: 35 Year
  Sex: Female
  Weight: 78.01 kg

DRUGS (1)
  1. BETAFERON [Suspect]
     Dosage: UNK UNK, QOD
     Route: 058
     Dates: start: 20101122, end: 20130210

REACTIONS (3)
  - Decreased activity [None]
  - Influenza like illness [None]
  - Arthralgia [None]
